FAERS Safety Report 6020242-1 (Version None)
Quarter: 2008Q4

REPORT INFORMATION
  Report Type: 
  Country: None (occurrence: None)
  Receive Date: 20081226
  Receipt Date: 20081217
  Transmission Date: 20090506
  Serious: Yes (Other)
  Sender: FDA-Public Use
  Company Number: PHHY2008CA32582

PATIENT
  Sex: Female

DRUGS (9)
  1. RECLAST [Suspect]
     Indication: OSTEOPOROSIS
     Dosage: 5 MG
     Route: 042
     Dates: start: 20081209
  2. SYNTHROID [Concomitant]
  3. CALCIUM [Concomitant]
  4. VITAMIN D [Concomitant]
  5. COUMADIN [Concomitant]
  6. PANTOPRAZOLE [Concomitant]
  7. LIPITOR [Concomitant]
  8. BISOPROLOL FUMARATE [Concomitant]
  9. BRICANYL [Concomitant]

REACTIONS (5)
  - DIZZINESS [None]
  - PRURITUS [None]
  - RASH [None]
  - TACHYCARDIA [None]
  - VOMITING [None]
